FAERS Safety Report 24205971 (Version 1)
Quarter: 2024Q3

REPORT INFORMATION
  Report Type: Spontaneous
  Country: US (occurrence: US)
  Receive Date: 20240813
  Receipt Date: 20240813
  Transmission Date: 20241017
  Serious: Yes (Other)
  Sender: PFIZER
  Company Number: US-PFIZER INC-202400232725

PATIENT
  Age: 13 Month
  Sex: Male

DRUGS (4)
  1. TOPOTECAN HYDROCHLORIDE [Suspect]
     Active Substance: TOPOTECAN HYDROCHLORIDE
     Indication: Neuroblastoma
     Dosage: UNK, CYCLIC
  2. CYCLOPHOSPHAMIDE [Suspect]
     Active Substance: CYCLOPHOSPHAMIDE
     Indication: Neuroblastoma
     Dosage: UNK, CYCLIC
  3. ECULIZUMAB [Concomitant]
     Active Substance: ECULIZUMAB
     Indication: Neuroblastoma
     Dosage: 300 MG, WEEKLY
  4. ECULIZUMAB [Concomitant]
     Active Substance: ECULIZUMAB
     Dosage: EVERY 2 WEEKS

REACTIONS (2)
  - Atypical haemolytic uraemic syndrome [Recovered/Resolved]
  - Off label use [Unknown]
